FAERS Safety Report 13944276 (Version 2)
Quarter: 2017Q4

REPORT INFORMATION
  Report Type: Spontaneous
  Country: US (occurrence: US)
  Receive Date: 20170907
  Receipt Date: 20171019
  Transmission Date: 20180320
  Serious: No
  Sender: FDA-Public Use
  Company Number: PHEH2017US028294

PATIENT
  Sex: Male

DRUGS (1)
  1. CIPRODEX [Suspect]
     Active Substance: CIPROFLOXACIN HYDROCHLORIDE\DEXAMETHASONE
     Indication: PRODUCT USED FOR UNKNOWN INDICATION
     Dosage: (2 TO 4 GTT, TID)
     Route: 001
     Dates: start: 20170831

REACTIONS (4)
  - Ear pain [Unknown]
  - Ear discomfort [Unknown]
  - Product quality issue [Unknown]
  - Screaming [Unknown]
